FAERS Safety Report 24980348 (Version 1)
Quarter: 2025Q1

REPORT INFORMATION
  Report Type: Spontaneous
  Country: US (occurrence: US)
  Receive Date: 20250218
  Receipt Date: 20250218
  Transmission Date: 20250409
  Serious: Yes (Disabling, Other)
  Sender: MYLAN
  Company Number: US-MYLANLABS-2025M1012668

PATIENT
  Age: 18 Year
  Sex: Male

DRUGS (3)
  1. CARBIDOPA\LEVODOPA [Suspect]
     Active Substance: CARBIDOPA\LEVODOPA
     Indication: Neurodegenerative disorder
     Route: 065
  2. BACLOFEN [Suspect]
     Active Substance: BACLOFEN
     Indication: Neurodegenerative disorder
     Route: 065
  3. HUMAN IMMUNOGLOBULIN G [Suspect]
     Active Substance: HUMAN IMMUNOGLOBULIN G
     Indication: Neurodegenerative disorder
     Route: 042

REACTIONS (2)
  - Therapy non-responder [Unknown]
  - Off label use [Unknown]
